FAERS Safety Report 7881551-4 (Version None)
Quarter: 2011Q4

REPORT INFORMATION
  Report Type: 
  Country: None (occurrence: None)
  Receive Date: 20111101
  Receipt Date: 20110602
  Transmission Date: 20120403
  Serious: No
  Sender: FDA-Public Use
  Company Number: US-AMGEN-USASP2011028730

PATIENT
  Sex: Male

DRUGS (2)
  1. ENBREL [Suspect]
     Indication: PSORIATIC ARTHROPATHY
  2. ENBREL [Suspect]
     Indication: ANKYLOSING SPONDYLITIS
     Dosage: 50 MG, QWK
     Dates: start: 20090113, end: 20090101

REACTIONS (5)
  - ERYTHEMA [None]
  - DRUG INEFFECTIVE [None]
  - JOINT SWELLING [None]
  - BACK PAIN [None]
  - OEDEMA PERIPHERAL [None]
